FAERS Safety Report 5608930-X (Version None)
Quarter: 2008Q1

REPORT INFORMATION
  Report Type: 
  Country: None (occurrence: None)
  Receive Date: 20080129
  Receipt Date: 20080129
  Transmission Date: 20080703
  Serious: Yes (Hospitalization)
  Sender: FDA-Public Use
  Company Number: None

PATIENT
  Sex: Female
  Weight: 104.7809 kg

DRUGS (4)
  1. IXEMPRA 45 MG BMS [Suspect]
     Indication: BREAST CANCER METASTATIC
     Dosage: 85 MG Q 3 WEEKS IV BOLUS
     Route: 040
     Dates: start: 20071221, end: 20071221
  2. CAPECITABINE [Concomitant]
  3. CIMETIDINE [Concomitant]
  4. DIPHENHYDRAMINE HCL [Concomitant]

REACTIONS (2)
  - MUCOSAL INFLAMMATION [None]
  - PALMAR-PLANTAR ERYTHRODYSAESTHESIA SYNDROME [None]
